FAERS Safety Report 14105734 (Version 1)
Quarter: 2017Q4

REPORT INFORMATION
  Report Type: Spontaneous
  Country: CN (occurrence: CN)
  Receive Date: 20171018
  Receipt Date: 20171018
  Transmission Date: 20180321
  Serious: Yes (Hospitalization)
  Sender: FDA-Public Use
  Company Number: CN-BAXTER-2017BAX035352

PATIENT
  Age: 47 Year
  Sex: Male
  Weight: 50 kg

DRUGS (26)
  1. 0.9% SODIUM CHLORIDE INJECTION [Suspect]
     Active Substance: SODIUM CHLORIDE
     Route: 041
     Dates: start: 20170712
  2. EDARAVONE [Suspect]
     Active Substance: EDARAVONE
     Indication: DRUG THERAPY
     Route: 041
     Dates: start: 20170712
  3. DIPEPTIVEN L-ALANYL-L-GLUTAMINE [Suspect]
     Active Substance: ALANYL GLUTAMINE
     Indication: SUPPLEMENTATION THERAPY
     Route: 041
     Dates: start: 20170712
  4. SODIUM CHLORIDE. [Suspect]
     Active Substance: SODIUM CHLORIDE
     Indication: MEDICATION DILUTION
     Route: 041
     Dates: start: 20170712
  5. LANSOPRAZOLE. [Suspect]
     Active Substance: LANSOPRAZOLE
     Indication: PROPHYLAXIS
     Route: 041
     Dates: start: 20170712
  6. SODIUM CHLORIDE. [Suspect]
     Active Substance: SODIUM CHLORIDE
     Dosage: DOSE REINTRODUCTION
     Route: 041
     Dates: end: 20170723
  7. 0.9% SODIUM CHLORIDE INJECTION [Suspect]
     Active Substance: SODIUM CHLORIDE
     Dosage: DOSE REINTRODUCTION
     Route: 041
     Dates: end: 20170721
  8. MEDIUM AND LONG CHAIN FAT EMULSION INJECTION (C8-24) [Suspect]
     Active Substance: GLYCERIN\MEDIUM-CHAIN TRIGLYCERIDES\PHOSPHOLIPID\SOYBEAN OIL
     Dosage: DOSE REINTRODUCTION
     Route: 041
     Dates: end: 20170721
  9. EDARAVONE [Suspect]
     Active Substance: EDARAVONE
     Dosage: DOSE REINTRODUCTION
     Route: 041
     Dates: end: 20170719
  10. LANSOPRAZOLE. [Suspect]
     Active Substance: LANSOPRAZOLE
     Dosage: DOSE REINTRODUCTION
     Route: 041
     Dates: end: 20170721
  11. DIPEPTIVEN L-ALANYL-L-GLUTAMINE [Suspect]
     Active Substance: ALANYL GLUTAMINE
     Dosage: DOSE REINTRODUCTION
     Route: 041
     Dates: end: 20170723
  12. SODIUM CHLORIDE. [Suspect]
     Active Substance: SODIUM CHLORIDE
     Dosage: DOSE REINTRODUCTION
     Route: 041
     Dates: end: 20170723
  13. 0.9% SODIUM CHLORIDE INJECTION [Suspect]
     Active Substance: SODIUM CHLORIDE
     Dosage: DOSE REINTRODUCTION
     Route: 041
     Dates: end: 20170719
  14. BROMHEXINE HYDROCHLORIDE [Suspect]
     Active Substance: BROMHEXINE HYDROCHLORIDE
     Indication: SPUTUM ABNORMAL
     Dosage: DOSE REINTRODUCTION
     Route: 041
     Dates: end: 20170723
  15. SODIUM CHLORIDE. [Suspect]
     Active Substance: SODIUM CHLORIDE
     Route: 041
     Dates: start: 20170712
  16. SODIUM CHLORIDE. [Suspect]
     Active Substance: SODIUM CHLORIDE
     Route: 041
     Dates: start: 20170712
  17. 0.9% SODIUM CHLORIDE INJECTION [Suspect]
     Active Substance: SODIUM CHLORIDE
     Indication: MEDICATION DILUTION
     Route: 041
     Dates: start: 20170712
  18. 0.9% SODIUM CHLORIDE INJECTION [Suspect]
     Active Substance: SODIUM CHLORIDE
     Dosage: DOSE REINTRODUCTION
     Route: 041
     Dates: end: 20170719
  19. 0.9% SODIUM CHLORIDE INJECTION [Suspect]
     Active Substance: SODIUM CHLORIDE
     Route: 041
     Dates: start: 20170712
  20. BROMHEXINE HYDROCHLORIDE [Suspect]
     Active Substance: BROMHEXINE HYDROCHLORIDE
     Indication: PRODUCTIVE COUGH
     Route: 041
     Dates: start: 20170712
  21. FAT-SOLUBLE VITAMINS FOR INJECTION (II) [Suspect]
     Active Substance: VITAMINS
     Dosage: 1 BOTTLE; DOSE REINTRODUCTION
     Route: 041
     Dates: end: 20170721
  22. PIPERACILLIN AND TAZOBACTAM [Suspect]
     Active Substance: PIPERACILLIN SODIUM\TAZOBACTAM SODIUM
     Dosage: DOSE REINTRODUCTION
     Route: 041
     Dates: end: 20170719
  23. SODIUM CHLORIDE. [Suspect]
     Active Substance: SODIUM CHLORIDE
     Dosage: DOSE REINTRODUCTION
     Route: 041
     Dates: end: 20170723
  24. FAT-SOLUBLE VITAMINS FOR INJECTION (II) [Suspect]
     Active Substance: VITAMINS
     Indication: NUTRITIONAL SUPPLEMENTATION
     Dosage: 1 BOTTLE
     Route: 041
     Dates: start: 20170711
  25. PIPERACILLIN AND TAZOBACTAM [Suspect]
     Active Substance: PIPERACILLIN SODIUM\TAZOBACTAM SODIUM
     Indication: INFECTION
     Route: 041
     Dates: start: 20170712
  26. MEDIUM AND LONG CHAIN FAT EMULSION INJECTION (C8-24) [Suspect]
     Active Substance: GLYCERIN\MEDIUM-CHAIN TRIGLYCERIDES\PHOSPHOLIPID\SOYBEAN OIL
     Indication: NUTRITIONAL SUPPLEMENTATION
     Route: 041
     Dates: start: 20170711

REACTIONS (1)
  - Hepatic function abnormal [Recovering/Resolving]

NARRATIVE: CASE EVENT DATE: 20170714
